FAERS Safety Report 10698484 (Version 4)
Quarter: 2015Q1

REPORT INFORMATION
  Report Type: Spontaneous
  Country: US (occurrence: US)
  Receive Date: 20140930
  Receipt Date: 20150306
  Transmission Date: 20150721
  Serious: Yes (Hospitalization, Congenital Anomaly, Other)
  Sender: FDA-Public Use
  Company Number: US-APOTEX-2014AP003754

PATIENT
  Age: 0 Day
  Sex: Female
  Weight: 3 kg

DRUGS (7)
  1. MACROBID [Concomitant]
     Active Substance: NITROFURANTOIN\NITROFURANTOIN MONOHYDRATE
     Dosage: 100 MG, BID
     Route: 064
     Dates: start: 20060130
  2. PAXIL [Suspect]
     Active Substance: PAROXETINE HYDROCHLORIDE
     Dosage: 20 MG, UNKNOWN
     Route: 064
     Dates: start: 20050624
  3. PAXIL [Suspect]
     Active Substance: PAROXETINE HYDROCHLORIDE
     Indication: DEPRESSION
     Dosage: 40 MG, DAILY
     Route: 064
     Dates: start: 2005, end: 2006
  4. HEMOCYTE-F [Concomitant]
     Active Substance: FERROUS FUMARATE\FOLIC ACID
     Indication: PRODUCT USED FOR UNKNOWN INDICATION
     Dosage: UNK
     Route: 064
     Dates: start: 20050727
  5. OBTREX [Concomitant]
     Active Substance: DIETARY SUPPLEMENT
     Indication: PRODUCT USED FOR UNKNOWN INDICATION
     Dosage: UNK
     Route: 064
     Dates: start: 20050727
  6. MACROBID [Concomitant]
     Active Substance: NITROFURANTOIN\NITROFURANTOIN MONOHYDRATE
     Indication: PRODUCT USED FOR UNKNOWN INDICATION
     Dosage: 100 MG, BID
     Route: 064
     Dates: start: 20050701
  7. GYNAZOLE-1 [Concomitant]
     Active Substance: BUTOCONAZOLE NITRATE
     Indication: PRODUCT USED FOR UNKNOWN INDICATION
     Dosage: UNK
     Route: 064
     Dates: start: 20050824

REACTIONS (13)
  - Hypoaesthesia [Unknown]
  - Ventricular hypertrophy [Unknown]
  - Tricuspid valve incompetence [Unknown]
  - Developmental delay [Unknown]
  - Junctional ectopic tachycardia [Unknown]
  - Cardiomyopathy [Unknown]
  - Foetal exposure during pregnancy [Unknown]
  - Transient ischaemic attack [Unknown]
  - Pulmonary artery stenosis congenital [Unknown]
  - Fallot^s tetralogy [Recovered/Resolved]
  - Patent ductus arteriosus [Unknown]
  - Atrial septal defect [Unknown]
  - Pulmonary valve stenosis [Unknown]

NARRATIVE: CASE EVENT DATE: 20060208
